FAERS Safety Report 4416845-8 (Version None)
Quarter: 2004Q3

REPORT INFORMATION
  Report Type: 
  Country: None (occurrence: None)
  Receive Date: 20040802
  Receipt Date: 20040719
  Transmission Date: 20050211
  Serious: Yes (Hospitalization, Other)
  Sender: FDA-Public Use
  Company Number: 04-00378

PATIENT
  Sex: Female

DRUGS (3)
  1. ACETAMINOPHEN [Suspect]
  2. ACETAMINOPHEN [Suspect]
  3. ACETAMINOPHEN [Suspect]

REACTIONS (3)
  - COMA HEPATIC [None]
  - HEPATIC FAILURE [None]
  - THROMBOCYTOPENIA [None]
